FAERS Safety Report 17358928 (Version 2)
Quarter: 2020Q4

REPORT INFORMATION
  Report Type: Spontaneous
  Country: US (occurrence: US)
  Receive Date: 20200202
  Receipt Date: 20201129
  Transmission Date: 20210113
  Serious: Yes (Death, Hospitalization)
  Sender: FDA-Public Use
  Company Number: US-NOVOPROD-709604

PATIENT
  Age: 68 Year
  Sex: Male
  Weight: 96.15 kg

DRUGS (2)
  1. VICTOZA [Suspect]
     Active Substance: LIRAGLUTIDE
     Dosage: UNK UNK, BID
     Route: 058
     Dates: start: 20150219, end: 20180312
  2. VICTOZA [Suspect]
     Active Substance: LIRAGLUTIDE
     Indication: TYPE 2 DIABETES MELLITUS
     Dosage: 1.6 CC, BID
     Route: 058
     Dates: start: 20131223

REACTIONS (4)
  - Hydronephrosis [Fatal]
  - Pancreatic carcinoma metastatic [Fatal]
  - Sepsis [Fatal]
  - Urinary tract infection [Fatal]

NARRATIVE: CASE EVENT DATE: 201801
